FAERS Safety Report 8774081 (Version 2)
Quarter: 2012Q4

REPORT INFORMATION
  Report Type: 
  Country: US (occurrence: US)
  Receive Date: 20120907
  Receipt Date: 20121023
  Transmission Date: 20130627
  Serious: Yes (Life-Threatening, Hospitalization, Other)
  Sender: FDA-Public Use
  Company Number: US-009507513-1209USA002289

PATIENT
  Age: 48 Year
  Sex: Female
  Weight: 70.75 kg

DRUGS (1)
  1. NUVARING [Suspect]
     Dosage: 0.120 mg/day of etonogestrel and 0.015 mg/day of ethinyl estradiol / 21 days
     Route: 067
     Dates: start: 20120305, end: 20120720

REACTIONS (8)
  - Pulmonary embolism [Recovering/Resolving]
  - Stress [Recovering/Resolving]
  - Transient ischaemic attack [Unknown]
  - Muscle spasms [Unknown]
  - Abdominal pain [Unknown]
  - Pain [Unknown]
  - Fatigue [Recovering/Resolving]
  - Menometrorrhagia [Unknown]
